FAERS Safety Report 9168150 (Version 2)
Quarter: 2013Q2

REPORT INFORMATION
  Report Type: Spontaneous
  Country: US (occurrence: US)
  Receive Date: 20130318
  Receipt Date: 20130408
  Transmission Date: 20140414
  Serious: Yes (Hospitalization)
  Sender: FDA-Public Use
  Company Number: US-ELI_LILLY_AND_COMPANY-US200609002479

PATIENT
  Age: 69 Year
  Sex: Female

DRUGS (3)
  1. FORTEO [Suspect]
     Indication: OSTEOPOROSIS
     Dosage: UNK, UNK
     Dates: start: 2005, end: 2007
  2. FORTEO [Suspect]
     Dosage: UNK
     Dates: start: 2012
  3. DARVOCET-N [Concomitant]
     Indication: PAIN

REACTIONS (3)
  - Impaired healing [Unknown]
  - Arthralgia [Not Recovered/Not Resolved]
  - Intentional drug misuse [Unknown]
